FAERS Safety Report 5448597-7 (Version None)
Quarter: 2007Q3

REPORT INFORMATION
  Report Type: 
  Country: None (occurrence: None)
  Receive Date: 20070905
  Receipt Date: 20070821
  Transmission Date: 20080115
  Serious: Yes (Death, Other)
  Sender: FDA-Public Use
  Company Number: ENC200700145

PATIENT
  Sex: Female
  Weight: 4.7 kg

DRUGS (5)
  1. ARGATROBAN [Suspect]
     Indication: HEPARIN-INDUCED THROMBOCYTOPENIA
     Dosage: 5 MCG/KG/MIN, INTRAVENOUS
     Route: 042
  2. HEPARIN [Concomitant]
  3. RED BLOOD CELLS [Concomitant]
  4. PLASMA [Concomitant]
  5. CRYOPRECIPITATE INFUSIONS [Concomitant]

REACTIONS (7)
  - AORTIC THROMBOSIS [None]
  - EMBOLISM [None]
  - EXTREMITY NECROSIS [None]
  - HYPOTENSION [None]
  - LABILE BLOOD PRESSURE [None]
  - LACTIC ACIDOSIS [None]
  - VENA CAVA THROMBOSIS [None]
